FAERS Safety Report 4870206-6 (Version None)
Quarter: 2005Q4

REPORT INFORMATION
  Report Type: 
  Country: None (occurrence: None)
  Receive Date: 20051228
  Receipt Date: 20051216
  Transmission Date: 20060501
  Serious: Yes (Death, Life-Threatening, Hospitalization, Other)
  Sender: FDA-Public Use
  Company Number: KII-2005-0020284

PATIENT
  Age: 19 Year
  Sex: Male

DRUGS (2)
  1. OXYCODONE HCL [Suspect]
     Indication: INTENTIONAL DRUG MISUSE
     Dosage: INTRAVENOUS
     Route: 042
  2. ACETAMINOPHEN [Suspect]
     Indication: DRUG USE FOR UNKNOWN INDICATION

REACTIONS (19)
  - BLOOD PRESSURE SYSTOLIC INCREASED [None]
  - BRAIN DEATH [None]
  - COMA [None]
  - DRUG ABUSER [None]
  - DYSKINESIA [None]
  - EYE ROLLING [None]
  - GRAND MAL CONVULSION [None]
  - HEART RATE INCREASED [None]
  - MYDRIASIS [None]
  - PNEUMONIA ASPIRATION [None]
  - PUPIL FIXED [None]
  - PUPILLARY REFLEX IMPAIRED [None]
  - PUPILS UNEQUAL [None]
  - PYREXIA [None]
  - RESPIRATORY ARREST [None]
  - RESPIRATORY RATE INCREASED [None]
  - TREMOR [None]
  - TROPONIN INCREASED [None]
  - VENTRICULAR TACHYCARDIA [None]
